FAERS Safety Report 9640123 (Version 1)
Quarter: 2013Q4

REPORT INFORMATION
  Report Type: Spontaneous
  Country: US (occurrence: US)
  Receive Date: 20131023
  Receipt Date: 20131023
  Transmission Date: 20140711
  Serious: No
  Sender: FDA-Public Use
  Company Number: US-PFIZER INC-2013300393

PATIENT
  Sex: Female

DRUGS (1)
  1. RELPAX [Suspect]
     Indication: MIGRAINE
     Dosage: UNK, DAILY
     Dates: start: 201310, end: 201310

REACTIONS (1)
  - Dyspnoea [Recovering/Resolving]
